FAERS Safety Report 6891501-5 (Version None)
Quarter: 2010Q3

REPORT INFORMATION
  Report Type: 
  Country: None (occurrence: None)
  Receive Date: 20100731
  Receipt Date: 20071027
  Transmission Date: 20110219
  Serious: No
  Sender: FDA-Public Use
  Company Number: US-PFIZER INC-2007053695

PATIENT
  Sex: Female
  Weight: 77.11 kg

DRUGS (2)
  1. NORVASC [Suspect]
  2. AMLODIPINE [Suspect]
     Indication: HYPERTENSION
     Route: 048
     Dates: start: 20070511, end: 20071015

REACTIONS (3)
  - BLOOD PRESSURE INADEQUATELY CONTROLLED [None]
  - HEADACHE [None]
  - NAUSEA [None]
